FAERS Safety Report 5732411-6 (Version None)
Quarter: 2008Q2

REPORT INFORMATION
  Report Type: 
  Country: None (occurrence: None)
  Receive Date: 20080507
  Receipt Date: 20080422
  Transmission Date: 20081010
  Serious: Yes (Other)
  Sender: FDA-Public Use
  Company Number: FR-1165974

PATIENT
  Age: 1 Month
  Sex: Male

DRUGS (1)
  1. ATROPINE SULFATE (ATROPINE SULFATE) 0.3 % SOLUTION EYE DROPS, SOLUTION [Suspect]
     Indication: FUNDOSCOPY
     Dosage: 1 GTT OU OPHTHALMIC
     Route: 047
     Dates: start: 20080219, end: 20080219

REACTIONS (4)
  - ABDOMINAL DISTENSION [None]
  - BRADYCARDIA [None]
  - DYSPNOEA [None]
  - MALAISE [None]
